FAERS Safety Report 13896774 (Version 2)
Quarter: 2017Q3

REPORT INFORMATION
  Report Type: Spontaneous
  Country: US (occurrence: US)
  Receive Date: 20170823
  Receipt Date: 20170908
  Transmission Date: 20171127
  Serious: No
  Sender: FDA-Public Use
  Company Number: US-VERTEX PHARMACEUTICALS-2017-004494

PATIENT
  Sex: Female

DRUGS (7)
  1. CETRIZINE [Concomitant]
     Active Substance: CETIRIZINE HYDROCHLORIDE
  2. HYPERSAL [Concomitant]
  3. OMEPRAZOLE. [Concomitant]
     Active Substance: OMEPRAZOLE
  4. URSO [Concomitant]
     Active Substance: URSODIOL
  5. ORKAMBI [Suspect]
     Active Substance: IVACAFTOR\LUMACAFTOR
     Indication: CYSTIC FIBROSIS
     Dosage: 400 MG, BID
     Route: 048
     Dates: start: 201508, end: 2017
  6. PREDNISONE. [Concomitant]
     Active Substance: PREDNISONE
     Indication: BRONCHOPULMONARY ASPERGILLOSIS ALLERGIC
  7. FLOVENT [Concomitant]
     Active Substance: FLUTICASONE PROPIONATE

REACTIONS (3)
  - Treatment noncompliance [Unknown]
  - Hepatic fibrosis [Unknown]
  - Liver function test increased [Unknown]

NARRATIVE: CASE EVENT DATE: 2017
